FAERS Safety Report 5229403-2 (Version None)
Quarter: 2007Q1

REPORT INFORMATION
  Report Type: 
  Country: None (occurrence: None)
  Receive Date: 20061201
  Receipt Date: 20060911
  Transmission Date: 20070707
  Serious: No
  Sender: FDA-Public Use
  Company Number: 2006PV021050

PATIENT
  Age: 74 Year
  Sex: Female
  Weight: 93.441 kg

DRUGS (4)
  1. BYETTA [Suspect]
     Indication: DIABETES MELLITUS NON-INSULIN-DEPENDENT
     Dosage: 5 MCG;BID;SC
     Route: 058
     Dates: start: 20060814
  2. METFORMIN HCL [Concomitant]
  3. ZYRTEC [Concomitant]
  4. GLUCOPHAGE [Concomitant]

REACTIONS (5)
  - BRONCHITIS [None]
  - DYSGEUSIA [None]
  - DYSPEPSIA [None]
  - NAUSEA [None]
  - VOMITING [None]
